FAERS Safety Report 7315391-1 (Version None)
Quarter: 2011Q1

REPORT INFORMATION
  Report Type: 
  Country: None (occurrence: None)
  Receive Date: 20110225
  Receipt Date: 20110218
  Transmission Date: 20110831
  Serious: Yes (Hospitalization, Disabling)
  Sender: FDA-Public Use
  Company Number: A0859592A

PATIENT
  Age: 60 Year
  Sex: Female
  Weight: 69.1 kg

DRUGS (13)
  1. CYMBALTA [Concomitant]
     Dosage: 30MG THREE TIMES PER DAY
     Route: 048
  2. DARVOCET-N 100 [Concomitant]
     Dosage: 1TAB THREE TIMES PER DAY
     Route: 048
  3. VESICARE [Concomitant]
     Dosage: 10MG AS REQUIRED
     Route: 048
  4. DIAZEPAM [Concomitant]
     Dosage: 5MG THREE TIMES PER DAY
     Route: 048
  5. METFORMIN HCL [Concomitant]
  6. SUMATRIPTAN SUCCINATE [Suspect]
     Indication: MIGRAINE
     Dosage: 100MG AS REQUIRED
     Route: 048
     Dates: start: 20100401, end: 20100501
  7. VICODIN [Suspect]
  8. GABAPENTIN [Concomitant]
     Dosage: 300MG PER DAY
     Route: 048
  9. IMITREX [Suspect]
     Dosage: 100MG PER DAY
     Route: 048
     Dates: start: 19950701
  10. LEVOTHYROXINE SODIUM [Concomitant]
     Dosage: 25MCG PER DAY
     Route: 048
  11. RAMIPRIL [Concomitant]
     Dosage: 5MG PER DAY
     Route: 048
  12. AMBIEN CR [Concomitant]
     Dosage: 12.5MG PER DAY
     Route: 048
  13. IMITREX [Suspect]
     Indication: MIGRAINE
     Dosage: 1APP AS REQUIRED
     Route: 058
     Dates: start: 19920101

REACTIONS (15)
  - TREATMENT NONCOMPLIANCE [None]
  - HYPOAESTHESIA [None]
  - PAIN [None]
  - THERAPEUTIC RESPONSE DECREASED [None]
  - BLOOD GLUCOSE INCREASED [None]
  - DRUG ADMINISTRATION ERROR [None]
  - DRUG INEFFECTIVE [None]
  - SPEECH DISORDER [None]
  - NAUSEA [None]
  - AMNESIA [None]
  - HEADACHE [None]
  - FALL [None]
  - DIABETES MELLITUS [None]
  - LOSS OF CONSCIOUSNESS [None]
  - MALAISE [None]
